FAERS Safety Report 14607169 (Version 2)
Quarter: 2018Q2

REPORT INFORMATION
  Report Type: Spontaneous
  Country: US (occurrence: US)
  Receive Date: 20180307
  Receipt Date: 20180518
  Transmission Date: 20180711
  Serious: No
  Sender: FDA-Public Use
  Company Number: US-BEH-2018088456

PATIENT
  Age: 8 Year
  Sex: Female
  Weight: 22.68 kg

DRUGS (5)
  1. EPIPEN JR [Concomitant]
     Active Substance: EPINEPHRINE
     Route: 065
  2. LIDOCAINE/PRILOCAINE [Concomitant]
     Active Substance: LIDOCAINE\PRILOCAINE
     Route: 065
  3. HAEGARDA [Suspect]
     Active Substance: HUMAN C1-ESTERASE INHIBITOR
     Indication: PRODUCT USED FOR UNKNOWN INDICATION
     Dosage: 1500 IU, EVERY 3 TO 4 DAYS
     Route: 058
     Dates: start: 20180110
  4. TYLENOL [Suspect]
     Active Substance: ACETAMINOPHEN
  5. HAEGARDA [Suspect]
     Active Substance: HUMAN C1-ESTERASE INHIBITOR
     Indication: PROPHYLAXIS
     Dosage: 1500 IU, TOT
     Route: 058

REACTIONS (3)
  - Urticaria [Unknown]
  - Nasopharyngitis [Unknown]
  - Cough [Unknown]

NARRATIVE: CASE EVENT DATE: 201802
